FAERS Safety Report 9781294 (Version 1)
Quarter: 2013Q4

REPORT INFORMATION
  Report Type: Spontaneous
  Country: US (occurrence: None)
  Receive Date: 20131223
  Receipt Date: 20131223
  Transmission Date: 20140711
  Serious: Yes (Death)
  Sender: FDA-Public Use
  Company Number: None

PATIENT
  Age: 95 Year
  Sex: Female
  Weight: 53 kg

DRUGS (1)
  1. WARFARIN [Suspect]
     Dosage: 1 PILL, VARIES, ORAL
     Route: 048

REACTIONS (3)
  - Contusion [None]
  - International normalised ratio increased [None]
  - Cerebral haemorrhage [None]
